FAERS Safety Report 9321162 (Version 1)
Quarter: 2013Q2

REPORT INFORMATION
  Report Type: Spontaneous
  Country: US (occurrence: None)
  Receive Date: 20130528
  Receipt Date: 20130528
  Transmission Date: 20140414
  Serious: Yes (Death)
  Sender: FDA-Public Use
  Company Number: 2012AP004008

PATIENT
  Age: 73 Year
  Sex: Male
  Weight: 72 kg

DRUGS (10)
  1. FERRIPROX [Suspect]
     Indication: ACUTE MYELOID LEUKAEMIA
     Route: 048
     Dates: start: 20120407, end: 201209
  2. AZACITIDINE [Concomitant]
  3. AMLODIPINE [Concomitant]
  4. FISH OIL [Concomitant]
  5. HYDRALAZINE [Concomitant]
  6. FUROSEMIDE [Concomitant]
  7. METOPROLOL [Concomitant]
  8. NITROGLYCERIN [Concomitant]
  9. TERAZOSIN [Concomitant]
  10. HECTOROL [Concomitant]

REACTIONS (1)
  - Acute myeloid leukaemia [None]
